FAERS Safety Report 7591134-1 (Version None)
Quarter: 2011Q3

REPORT INFORMATION
  Report Type: 
  Country: None (occurrence: None)
  Receive Date: 20110705
  Receipt Date: 20110624
  Transmission Date: 20111222
  Serious: Yes (Hospitalization)
  Sender: FDA-Public Use
  Company Number: JP-ASTRAZENECA-2011SE37287

PATIENT
  Age: 81 Year
  Sex: Female
  Weight: 53 kg

DRUGS (6)
  1. EPHEDRA TEAS [Suspect]
     Indication: NASOPHARYNGITIS
     Route: 048
     Dates: start: 20110408, end: 20110421
  2. ARIMIDEX [Suspect]
     Indication: BREAST CANCER
     Route: 048
     Dates: start: 20090101, end: 20110601
  3. GLAKAY [Concomitant]
     Indication: OSTEOPOROSIS
     Route: 048
     Dates: end: 20110613
  4. ONEALFA [Concomitant]
     Indication: OSTEOPOROSIS
     Route: 048
     Dates: end: 20110613
  5. BONALON [Concomitant]
     Indication: OSTEOPOROSIS
     Route: 048
     Dates: end: 20110613
  6. OLMESARTAN MEDOXOMIL [Suspect]
     Indication: HYPERTENSION
     Route: 048
     Dates: start: 20100501, end: 20110613

REACTIONS (1)
  - INTERSTITIAL LUNG DISEASE [None]
